APPROVED DRUG PRODUCT: AMRINONE LACTATE
Active Ingredient: INAMRINONE LACTATE
Strength: EQ 5MG BASE/ML
Dosage Form/Route: INJECTABLE;INJECTION
Application: A075542 | Product #001
Applicant: BAXTER HEALTHCARE CORP ANESTHESIA CRITICAL CARE
Approved: May 10, 2000 | RLD: No | RS: No | Type: DISCN